FAERS Safety Report 21351363 (Version 1)
Quarter: 2022Q3

REPORT INFORMATION
  Report Type: Spontaneous
  Country: DE (occurrence: DE)
  Receive Date: 20220919
  Receipt Date: 20220919
  Transmission Date: 20221027
  Serious: Yes (Death, Hospitalization, Other)
  Sender: FDA-Public Use
  Company Number: DE-ADRED-06909-01

PATIENT
  Age: 78 Year
  Sex: Female
  Weight: 55 kg

DRUGS (5)
  1. ENOXAPARIN SODIUM [Suspect]
     Active Substance: ENOXAPARIN SODIUM
     Dosage: 40 MG, QD (0-0-1-0, PRE-FILLED SYRINGES)
     Route: 058
  2. ASPIRIN [Suspect]
     Active Substance: ASPIRIN
     Dosage: 100 MG, QD (0-1-0-0, TABLET)
     Route: 048
  3. POTASSIUM CITRATE [Concomitant]
     Active Substance: POTASSIUM CITRATE
     Dosage: 2157.3  MG, BID (1-1-0-0, GRANULES)
     Route: 048
  4. CARBIMAZOLE [Concomitant]
     Active Substance: CARBIMAZOLE
     Dosage: 10 MG, QD (1-0-0-0)
     Route: 048
  5. METAMIZOLE [Concomitant]
     Active Substance: METAMIZOLE
     Dosage: 500 MG (NEED, DROP)
     Route: 048

REACTIONS (3)
  - General physical health deterioration [Fatal]
  - Gastrointestinal haemorrhage [Fatal]
  - Haematochezia [Fatal]
